FAERS Safety Report 8618509-3 (Version None)
Quarter: 2012Q3

REPORT INFORMATION
  Report Type: 
  Country: None (occurrence: None)
  Receive Date: 20120824
  Receipt Date: 20120810
  Transmission Date: 20120928
  Serious: Yes (Hospitalization)
  Sender: FDA-Public Use
  Company Number: RS-RANBAXY-2012R1-59168

PATIENT
  Age: 55 Year
  Sex: Female

DRUGS (1)
  1. NITROFURANTOIN [Suspect]
     Indication: URINARY TRACT INFECTION
     Dosage: 100MG, BID
     Route: 065

REACTIONS (4)
  - SJOGREN'S SYNDROME [None]
  - LUNG DISORDER [None]
  - AUTOIMMUNE HEPATITIS [None]
  - NEURODERMATITIS [None]
